FAERS Safety Report 12471967 (Version 1)
Quarter: 2016Q2

REPORT INFORMATION
  Report Type: Spontaneous
  Country: US (occurrence: None)
  Receive Date: 20160615
  Receipt Date: 20160615
  Transmission Date: 20160815
  Serious: Yes (Hospitalization)
  Sender: FDA-Public Use
  Company Number: None

PATIENT
  Age: 65 Year
  Sex: Female
  Weight: 89.7 kg

DRUGS (13)
  1. APAP [Concomitant]
     Active Substance: ACETAMINOPHEN
  2. SYNTHROID [Concomitant]
     Active Substance: LEVOTHYROXINE SODIUM
  3. ZESTRIL [Concomitant]
     Active Substance: LISINOPRIL
  4. ADVAIR HFA [Concomitant]
     Active Substance: FLUTICASONE PROPIONATE\SALMETEROL XINAFOATE
  5. CLARITIN [Concomitant]
     Active Substance: LORATADINE
  6. ALDACTONE [Concomitant]
     Active Substance: SPIRONOLACTONE
  7. ELIQUIS [Suspect]
     Active Substance: APIXABAN
     Indication: ATRIAL FIBRILLATION
     Route: 048
  8. PAXIL [Concomitant]
     Active Substance: PAROXETINE HYDROCHLORIDE
  9. LYRICA [Concomitant]
     Active Substance: PREGABALIN
  10. CORG [Concomitant]
  11. FLEXERIL [Concomitant]
     Active Substance: CYCLOBENZAPRINE HYDROCHLORIDE
  12. DECADRON [Concomitant]
     Active Substance: DEXAMETHASONE
  13. LANOXIN [Concomitant]
     Active Substance: DIGOXIN

REACTIONS (3)
  - Gastrointestinal haemorrhage [None]
  - Foreign body [None]
  - Haemorrhagic anaemia [None]

NARRATIVE: CASE EVENT DATE: 20160105
